FAERS Safety Report 24891440 (Version 1)
Quarter: 2025Q1

REPORT INFORMATION
  Report Type: Spontaneous
  Country: US (occurrence: US)
  Receive Date: 20250127
  Receipt Date: 20250127
  Transmission Date: 20250409
  Serious: Yes (Hospitalization, Other)
  Sender: PFIZER
  Company Number: US-PFIZER INC-PV202500009259

PATIENT
  Sex: Female

DRUGS (18)
  1. IBRANCE [Suspect]
     Active Substance: PALBOCICLIB
     Indication: Breast cancer female
     Dates: start: 201604, end: 201704
  2. IBRANCE [Suspect]
     Active Substance: PALBOCICLIB
     Dates: start: 201704
  3. IBRANCE [Suspect]
     Active Substance: PALBOCICLIB
     Dates: start: 201811
  4. IBRANCE [Suspect]
     Active Substance: PALBOCICLIB
     Dates: start: 201905
  5. IBRANCE [Suspect]
     Active Substance: PALBOCICLIB
     Route: 048
     Dates: start: 20210408
  6. IBRANCE [Suspect]
     Active Substance: PALBOCICLIB
     Route: 048
     Dates: start: 20240223
  7. IBRANCE [Suspect]
     Active Substance: PALBOCICLIB
     Dates: start: 20240921
  8. ZOMETA [Suspect]
     Active Substance: ZOLEDRONIC ACID
     Indication: Breast cancer female
     Dosage: (Q3MO) (EVERY 3 MONTHS.)
     Dates: start: 201604, end: 201704
  9. ZOMETA [Suspect]
     Active Substance: ZOLEDRONIC ACID
     Dosage: Q (EVERY) 3MONTH
     Dates: start: 201704
  10. ZOMETA [Suspect]
     Active Substance: ZOLEDRONIC ACID
     Dates: start: 201811
  11. ZOMETA [Suspect]
     Active Substance: ZOLEDRONIC ACID
     Dates: start: 201905
  12. FASLODEX [Suspect]
     Active Substance: FULVESTRANT
     Indication: Breast cancer female
     Dates: start: 201604, end: 201704
  13. FASLODEX [Suspect]
     Active Substance: FULVESTRANT
     Dates: start: 201704
  14. FASLODEX [Suspect]
     Active Substance: FULVESTRANT
     Dates: start: 201811
  15. FASLODEX [Suspect]
     Active Substance: FULVESTRANT
     Dates: start: 201905
  16. FASLODEX [Suspect]
     Active Substance: FULVESTRANT
     Dosage: 100 MG, QD (ONCE A DAY)
     Route: 048
  17. FASLODEX [Suspect]
     Active Substance: FULVESTRANT
     Route: 048
     Dates: start: 20210408
  18. FASLODEX [Suspect]
     Active Substance: FULVESTRANT
     Dates: start: 20240921

REACTIONS (6)
  - COVID-19 [Unknown]
  - Neutropenia [Unknown]
  - Neoplasm progression [Unknown]
  - Dyspnoea exertional [Unknown]
  - Back pain [Unknown]
  - Drug hypersensitivity [Unknown]

NARRATIVE: CASE EVENT DATE: 20170401
